FAERS Safety Report 12283361 (Version 3)
Quarter: 2016Q2

REPORT INFORMATION
  Report Type: Report from Study
  Country: MW (occurrence: MW)
  Receive Date: 20160419
  Receipt Date: 20160428
  Transmission Date: 20160815
  Serious: Yes (Death, Other)
  Sender: FDA-Public Use
  Company Number: MW-GILEAD-2016-0209071

PATIENT
  Age: 30 Year
  Sex: Male

DRUGS (4)
  1. EFAVIRENZ/EMTRICITABINE/TENOFOVIR DISOPROXIL FUMARATE [Suspect]
     Active Substance: EFAVIRENZ\EMTRICITABINE\TENOFOVIR DISOPROXIL FUMARATE
     Indication: ACQUIRED IMMUNODEFICIENCY SYNDROME
     Dosage: 1 DF, UNK
     Route: 048
     Dates: start: 20150612, end: 20160410
  2. ACETAMINOPHEN. [Concomitant]
     Active Substance: ACETAMINOPHEN
  3. PACLITAXEL. [Suspect]
     Active Substance: PACLITAXEL
     Indication: KAPOSI^S SARCOMA
     Dosage: 146 MG, Q3WK
     Route: 042
     Dates: start: 20150612, end: 20150923
  4. FUROSEMIDE. [Concomitant]
     Active Substance: FUROSEMIDE

REACTIONS (1)
  - Kaposi^s sarcoma [Fatal]

NARRATIVE: CASE EVENT DATE: 20160411
